FAERS Safety Report 8623230-1 (Version None)
Quarter: 2012Q3

REPORT INFORMATION
  Report Type: 
  Country: None (occurrence: None)
  Receive Date: 20120827
  Receipt Date: 20120817
  Transmission Date: 20120928
  Serious: Yes (Other)
  Sender: FDA-Public Use
  Company Number: US-US-EMD SERONO, INC.-7156242

PATIENT
  Sex: Female
  Weight: 64 kg

DRUGS (3)
  1. STEROIDS [Concomitant]
     Indication: SYSTEMIC LUPUS ERYTHEMATOSUS
     Route: 048
  2. REBIF [Suspect]
     Indication: MULTIPLE SCLEROSIS
     Route: 058
     Dates: end: 20100201
  3. REBIF [Suspect]
     Route: 058
     Dates: start: 20120307

REACTIONS (7)
  - LYMPHOMA [None]
  - INJECTION SITE PAIN [None]
  - TYPE 1 DIABETES MELLITUS [None]
  - WHITE BLOOD CELL COUNT DECREASED [None]
  - SYSTEMIC LUPUS ERYTHEMATOSUS [None]
  - INFLUENZA LIKE ILLNESS [None]
  - INJECTION SITE ERYTHEMA [None]
